FAERS Safety Report 7514767-7 (Version None)
Quarter: 2011Q2

REPORT INFORMATION
  Report Type: 
  Country: None (occurrence: None)
  Receive Date: 20110520
  Receipt Date: 20110516
  Transmission Date: 20111010
  Serious: Yes (Other)
  Sender: FDA-Public Use
  Company Number: OSCN-PR-1105S-0134

PATIENT
  Sex: Female

DRUGS (3)
  1. OMNISCAN [Suspect]
     Indication: PRODUCT USED FOR UNKNOWN INDICATION
     Dosage: SINGLE DOSE
     Dates: start: 20060508, end: 20060508
  2. OMNISCAN [Suspect]
     Indication: PRODUCT USED FOR UNKNOWN INDICATION
     Dosage: SINGLE DOSE
     Dates: start: 20061101, end: 20061101
  3. OMNISCAN [Suspect]
     Dosage: UNSPECIFIED, SINGLE DOSE, UNKNOWN
     Dates: start: 20061101, end: 20061101

REACTIONS (1)
  - NEPHROGENIC SYSTEMIC FIBROSIS [None]
